FAERS Safety Report 10913068 (Version 2)
Quarter: 2015Q2

REPORT INFORMATION
  Report Type: Spontaneous
  Country: IL (occurrence: None)
  Receive Date: 20150310
  Receipt Date: 20150601
  Transmission Date: 20150821
  Serious: Yes (Death, Other)
  Sender: FDA-Public Use
  Company Number: 2015SGN00320

PATIENT
  Age: 77 Year
  Sex: Male

DRUGS (1)
  1. ADCETRIS [Suspect]
     Active Substance: BRENTUXIMAB VEDOTIN
     Indication: HODGKIN^S DISEASE
     Route: 042
     Dates: start: 201501, end: 201502

REACTIONS (4)
  - Spinal compression fracture [None]
  - Pneumonia [None]
  - Osteoporosis [None]
  - Off label use [None]

NARRATIVE: CASE EVENT DATE: 201502
